FAERS Safety Report 13245509 (Version 1)
Quarter: 2017Q1

REPORT INFORMATION
  Report Type: Other
  Country: US (occurrence: US)
  Receive Date: 20170217
  Receipt Date: 20170217
  Transmission Date: 20170428
  Serious: Yes (Hospitalization, Other)
  Sender: FDA-Public Use
  Company Number: US-OREXIGEN THERAPEUTICS, INC.-1063262

PATIENT
  Age: 68 Year
  Sex: Female
  Weight: 121 kg

DRUGS (2)
  1. CONTRAVE [Suspect]
     Active Substance: BUPROPION HYDROCHLORIDE\NALTREXONE HYDROCHLORIDE
     Indication: WEIGHT CONTROL
     Route: 048
     Dates: start: 20170203, end: 20170208
  2. ATORVASTATIN [Concomitant]
     Active Substance: ATORVASTATIN
     Dates: start: 2015

REACTIONS (8)
  - Chills [Unknown]
  - Abdominal pain [Unknown]
  - Hyperhidrosis [Unknown]
  - Blood pressure increased [Unknown]
  - Headache [Unknown]
  - Malaise [Unknown]
  - Dizziness [Unknown]
  - Patient dissatisfaction with treatment [Unknown]

NARRATIVE: CASE EVENT DATE: 20170208
